FAERS Safety Report 14612772 (Version 6)
Quarter: 2018Q3

REPORT INFORMATION
  Report Type: Spontaneous
  Country: FR (occurrence: FR)
  Receive Date: 20180308
  Receipt Date: 20180807
  Transmission Date: 20181010
  Serious: Yes (Other)
  Sender: FDA-Public Use
  Company Number: FR-AUROBINDO-AUR-APL-2017-19606

PATIENT
  Age: 17 Year
  Sex: Female

DRUGS (7)
  1. IBUPROFEN. [Suspect]
     Active Substance: IBUPROFEN
     Indication: PAIN
     Dosage: 400 MG, QID
     Route: 065
     Dates: start: 201302
  2. IBUPROFEN. [Suspect]
     Active Substance: IBUPROFEN
     Dosage: GRADUALLY STARTED REDUCING THE DOSES, UNTIL SHE STOPPED TAKING IT COMPLETLY
     Route: 065
  3. IBUPROFEN. [Suspect]
     Active Substance: IBUPROFEN
     Indication: ARTHRALGIA
     Dosage: 400 MG, PRN, 4 ? 5 TIMES A DAY
     Route: 065
  4. MIRTAZAPINE. [Concomitant]
     Active Substance: MIRTAZAPINE
     Indication: MAJOR DEPRESSION
     Dosage: 15 MG/DAY
     Route: 065
     Dates: start: 201303
  5. IBUPROFEN. [Suspect]
     Active Substance: IBUPROFEN
     Indication: CHONDROPATHY
     Dosage: 400 MG, 8 TIMES/DAY
     Route: 065
     Dates: start: 201304
  6. IBUPROFEN. [Suspect]
     Active Substance: IBUPROFEN
     Dosage: 400 MILLIGRAM, ONCE A DAY
     Route: 065
  7. LONARID MONO [Suspect]
     Active Substance: ACETAMINOPHEN
     Indication: PAIN
     Dosage: UNK
     Route: 016

REACTIONS (15)
  - Headache [Unknown]
  - Social problem [Unknown]
  - Drug abuse [Unknown]
  - Drug withdrawal syndrome [Recovered/Resolved]
  - Hyperhidrosis [Unknown]
  - Irritability [Unknown]
  - Anxiety [Unknown]
  - Intentional overdose [Unknown]
  - Drug ineffective [Unknown]
  - Cluster headache [Unknown]
  - Drug dependence [Unknown]
  - Arthralgia [Unknown]
  - Drug withdrawal headache [Unknown]
  - Tremor [Unknown]
  - Substance abuse [Unknown]

NARRATIVE: CASE EVENT DATE: 2013
